FAERS Safety Report 17956187 (Version 1)
Quarter: 2020Q2

REPORT INFORMATION
  Report Type: Spontaneous
  Country: NL (occurrence: NL)
  Receive Date: 20200629
  Receipt Date: 20200629
  Transmission Date: 20200714
  Serious: Yes (Other)
  Sender: FDA-Public Use
  Company Number: NL-AMGEN-NLDSP2020100731

PATIENT
  Sex: Male

DRUGS (1)
  1. ARANESP [Suspect]
     Active Substance: DARBEPOETIN ALFA
     Indication: MYELODYSPLASTIC SYNDROME
     Dosage: 80 MICROGRAM, Q2WK
     Route: 065

REACTIONS (6)
  - Eczema [Unknown]
  - Rheumatoid arthritis [Unknown]
  - Injection site haemorrhage [Unknown]
  - Oedema [Unknown]
  - Rash [Unknown]
  - Contusion [Unknown]
